FAERS Safety Report 7620705 (Version 2)
Quarter: 2012Q4

REPORT INFORMATION
  Report Type: 
  Country: JP (occurrence: US)
  Receive Date: 20101007
  Receipt Date: 20121115
  Transmission Date: 20130627
  Serious: Yes (Hospitalization, Other)
  Sender: FDA-Public Use
  Company Number: US-JNJFOC-20100805999

PATIENT
  Sex: Male

DRUGS (2)
  1. LEVAQUIN [Suspect]
     Indication: RESPIRATORY TRACT CONGESTION
     Route: 048
  2. LEVAQUIN [Suspect]
     Indication: SINUSITIS
     Route: 048

REACTIONS (8)
  - Rotator cuff syndrome [Unknown]
  - Tendon disorder [Unknown]
  - Tenosynovitis [Unknown]
  - Bursitis [Unknown]
  - Joint injury [Unknown]
  - Osteoarthritis [Unknown]
  - Tendon rupture [Unknown]
  - Insomnia [Unknown]
